FAERS Safety Report 21347075 (Version 2)
Quarter: 2022Q4

REPORT INFORMATION
  Report Type: Report from Study
  Country: US (occurrence: US)
  Receive Date: 20220919
  Receipt Date: 20221003
  Transmission Date: 20230113
  Serious: No
  Sender: FDA-Public Use
  Company Number: US-SA-SAC20220912001602

PATIENT
  Sex: Female

DRUGS (11)
  1. TERIFLUNOMIDE [Suspect]
     Active Substance: TERIFLUNOMIDE
     Indication: Multiple sclerosis
     Dosage: UNK
     Route: 048
     Dates: start: 20140114
  2. VITAMINS [Concomitant]
     Active Substance: VITAMINS
  3. SERTRALINE [Concomitant]
     Active Substance: SERTRALINE HYDROCHLORIDE
  4. ROPINIROLE [Concomitant]
     Active Substance: ROPINIROLE
  5. POTASSIUM [Concomitant]
     Active Substance: POTASSIUM
  6. OMEPRAZOLE [Concomitant]
     Active Substance: OMEPRAZOLE
  7. METOPROLOL [Concomitant]
     Active Substance: METOPROLOL
  8. LISINOPRIL [Concomitant]
     Active Substance: LISINOPRIL
  9. IBANDRONATE SODIUM [Concomitant]
     Active Substance: IBANDRONATE SODIUM
  10. FUROSEMIDE [Concomitant]
     Active Substance: FUROSEMIDE
  11. BACLOFEN [Concomitant]
     Active Substance: BACLOFEN

REACTIONS (2)
  - Throat clearing [Unknown]
  - Sinus disorder [Unknown]
